FAERS Safety Report 20085004 (Version 1)
Quarter: 2021Q4

REPORT INFORMATION
  Report Type: Spontaneous
  Country: US (occurrence: None)
  Receive Date: 20211117
  Receipt Date: 20211117
  Transmission Date: 20220303
  Serious: Yes (Hospitalization)
  Sender: FDA-Public Use
  Company Number: None

PATIENT
  Sex: Male

DRUGS (3)
  1. PULMOZYME [Suspect]
     Active Substance: DORNASE ALFA
     Indication: Product used for unknown indication
  2. TOBRAMYCIN [Suspect]
     Active Substance: TOBRAMYCIN
  3. TOBRAMYCIN NEB [Concomitant]

REACTIONS (2)
  - Pulmonary arterial hypertension [None]
  - Cardiac arrest [None]
